FAERS Safety Report 7829364-3 (Version None)
Quarter: 2011Q4

REPORT INFORMATION
  Report Type: 
  Country: None (occurrence: None)
  Receive Date: 20111020
  Receipt Date: 20111006
  Transmission Date: 20120403
  Serious: Yes (Hospitalization)
  Sender: FDA-Public Use
  Company Number: US-ARROW GEN-2011-16124

PATIENT
  Sex: Female

DRUGS (2)
  1. FOSAMAX [Suspect]
     Indication: PRODUCT USED FOR UNKNOWN INDICATION
     Dosage: TOOK FOR ^APPROXIMATELY 10 YEARS^
     Route: 048
     Dates: start: 20100101
  2. ALENDRONATE SODIUM [Suspect]
     Indication: PRODUCT USED FOR UNKNOWN INDICATION
     Dosage: TOOK FOR ^APPROXIMATELY 10 YEARS^
     Route: 048
     Dates: start: 20100101

REACTIONS (3)
  - FEMUR FRACTURE [None]
  - PAIN IN EXTREMITY [None]
  - PAIN [None]
